FAERS Safety Report 7213429-3 (Version None)
Quarter: 2010Q4

REPORT INFORMATION
  Report Type: 
  Country: None (occurrence: None)
  Receive Date: 20101229
  Receipt Date: 20101214
  Transmission Date: 20110411
  Serious: Yes (Death)
  Sender: FDA-Public Use
  Company Number: 2010P1003063

PATIENT
  Age: 77 Year
  Sex: Male
  Weight: 104.3273 kg

DRUGS (10)
  1. FENTANYL-25 [Suspect]
     Indication: PAIN
     Dosage: ;Q72HRS;TDER
     Route: 062
     Dates: start: 20070101, end: 20101001
  2. FENTANYL-12 [Suspect]
  3. LOPRESSOR (METOPROLOL) [Concomitant]
  4. POTASSIUM CITRATE [Concomitant]
  5. VITAMIN B-12 [Concomitant]
  6. CRANBERRY FRUIT PILL [Concomitant]
  7. LASIX [Concomitant]
  8. GLIMEPIRIDE [Concomitant]
  9. ZOCOR [Concomitant]
  10. NEURONTIN [Concomitant]

REACTIONS (4)
  - DIZZINESS [None]
  - DRUG INEFFECTIVE [None]
  - INCORRECT DOSE ADMINISTERED [None]
  - PRODUCT QUALITY ISSUE [None]
